FAERS Safety Report 5377688-4 (Version None)
Quarter: 2007Q3

REPORT INFORMATION
  Report Type: 
  Country: None (occurrence: None)
  Receive Date: 20070703
  Receipt Date: 20070622
  Transmission Date: 20080115
  Serious: Yes (Other)
  Sender: FDA-Public Use
  Company Number: CL-PFIZER INC-2007049904

PATIENT
  Age: 53 Year
  Sex: Female
  Weight: 59 kg

DRUGS (4)
  1. DETRUSITOL [Suspect]
     Indication: URINARY INCONTINENCE
     Route: 048
     Dates: start: 20070201, end: 20070613
  2. NITROFURANTOIN [Concomitant]
     Dates: start: 20070101, end: 20070613
  3. ANTIINFLAMMATORY AGENTS [Concomitant]
  4. PHENAZOPYRIDINE HCL TAB [Concomitant]

REACTIONS (3)
  - CHEST PAIN [None]
  - LIVER FUNCTION TEST ABNORMAL [None]
  - TACHYCARDIA [None]
